FAERS Safety Report 25256949 (Version 2)
Quarter: 2025Q2

REPORT INFORMATION
  Report Type: Report from Study
  Country: US (occurrence: US)
  Receive Date: 20250430
  Receipt Date: 20250516
  Transmission Date: 20250716
  Serious: Yes (Other)
  Sender: REGENERON
  Company Number: US-REGENERON PHARMACEUTICALS, INC.-2025-064342

PATIENT
  Sex: Female

DRUGS (1)
  1. CEMIPLIMAB [Suspect]
     Active Substance: CEMIPLIMAB
     Indication: Lung neoplasm malignant
     Dosage: 350 MG, Q3W
     Route: 042
     Dates: start: 20250114

REACTIONS (7)
  - Illness [Recovered/Resolved]
  - Feeling abnormal [Recovered/Resolved]
  - Headache [Not Recovered/Not Resolved]
  - Abdominal discomfort [Unknown]
  - Fatigue [Unknown]
  - Dry mouth [Unknown]
  - Erythema [Unknown]

NARRATIVE: CASE EVENT DATE: 20250408
